FAERS Safety Report 7734467-8 (Version None)
Quarter: 2011Q3

REPORT INFORMATION
  Report Type: 
  Country: None (occurrence: None)
  Receive Date: 20110907
  Receipt Date: 20110825
  Transmission Date: 20111222
  Serious: Yes (Hospitalization)
  Sender: FDA-Public Use
  Company Number: JP-SANOFI-AVENTIS-2011SA056578

PATIENT
  Age: 60 Year
  Sex: Male
  Weight: 45 kg

DRUGS (11)
  1. CARVEDILOL [Concomitant]
     Dates: start: 20110721
  2. ISORDIL [Concomitant]
     Dates: start: 20110720
  3. CARVEDILOL [Concomitant]
     Dates: start: 20110721
  4. PLAVIX [Suspect]
     Indication: ACUTE CORONARY SYNDROME
     Route: 048
     Dates: start: 20110712
  5. ASPIRIN [Suspect]
     Indication: ACUTE CORONARY SYNDROME
     Route: 065
     Dates: start: 20110721
  6. BLINDED THERAPY [Concomitant]
     Indication: ACUTE CORONARY SYNDROME
     Dates: start: 20110721
  7. MAGNESIUM SULFATE [Concomitant]
     Dates: start: 20110720
  8. ENALAPRIL MALEATE [Concomitant]
     Dates: start: 20110720
  9. EPTIFIBATIDE [Concomitant]
     Indication: ACUTE CORONARY SYNDROME
     Dates: start: 20110721
  10. SIMVASTATIN [Concomitant]
     Dates: start: 20110720
  11. OMEPRAZOLE [Concomitant]
     Dates: start: 20110721

REACTIONS (1)
  - DYSPEPSIA [None]
